FAERS Safety Report 8901171 (Version 1)
Quarter: 2012Q4

REPORT INFORMATION
  Report Type: 
  Country: DK (occurrence: FR)
  Receive Date: 20121108
  Receipt Date: 20121108
  Transmission Date: 20130627
  Serious: Yes (Hospitalization)
  Sender: FDA-Public Use
  Company Number: FR-FRI-1000040250

PATIENT
  Sex: Male
  Weight: 99.5 kg

DRUGS (12)
  1. ESCITALOPRAM [Suspect]
     Indication: PRODUCT USED FOR UNKNOWN INDICATION
  2. BENDAMUSTINE [Suspect]
     Indication: B-CELL LYMPHOMA
     Dosage: 204.4 mg
     Route: 042
     Dates: start: 20120322
  3. BENDAMUSTINE [Suspect]
     Dosage: 80 mg/m2
     Route: 042
     Dates: start: 20120618, end: 20120713
  4. RITUXIMAB [Suspect]
     Indication: B-CELL LYMPHOMA
     Dosage: 850 mg
     Route: 058
     Dates: start: 20120321
  5. RITUXIMAB [Suspect]
     Dosage: 1400 mg
     Route: 058
     Dates: start: 20120420
  6. RITUXIMAB [Suspect]
     Dosage: 1400 mg
     Route: 058
     Dates: start: 20120618, end: 20120713
  7. FUROSEMIDE [Suspect]
     Indication: PRODUCT USED FOR UNKNOWN INDICATION
  8. ACEBUTOLOL [Concomitant]
     Dosage: 200 mg
  9. ARIXTRA [Concomitant]
     Indication: THROMBOSIS
     Dates: start: 20120326
  10. ARIXTRA [Concomitant]
     Indication: PULMONARY EMBOLISM
  11. SOLU-MEDROL [Concomitant]
     Indication: BRONCHOSPASM
     Dosage: 60 mg
     Dates: start: 20120321, end: 20120321
  12. COAPROVEL [Concomitant]

REACTIONS (2)
  - Drug reaction with eosinophilia and systemic symptoms [Not Recovered/Not Resolved]
  - Skin toxicity [Not Recovered/Not Resolved]
